FAERS Safety Report 4713268-9 (Version None)
Quarter: 2005Q3

REPORT INFORMATION
  Report Type: 
  Country: None (occurrence: None)
  Receive Date: 20050713
  Receipt Date: 20050706
  Transmission Date: 20060218
  Serious: Yes (Death)
  Sender: FDA-Public Use
  Company Number: US-MERCK-0507USA01015

PATIENT
  Sex: Female

DRUGS (3)
  1. VIOXX [Suspect]
     Route: 048
  2. BEXTRA [Suspect]
     Route: 065
  3. CELEBREX [Suspect]
     Route: 065

REACTIONS (1)
  - DEATH [None]
